FAERS Safety Report 7807424-0 (Version None)
Quarter: 2011Q4

REPORT INFORMATION
  Report Type: 
  Country: None (occurrence: None)
  Receive Date: 20111011
  Receipt Date: 20110714
  Transmission Date: 20120403
  Serious: Yes (Hospitalization)
  Sender: FDA-Public Use
  Company Number: US-BAYER-2011-007652

PATIENT
  Age: 29 Year
  Sex: Female
  Weight: 82 kg

DRUGS (3)
  1. AZITHROMYCIN [Concomitant]
     Dosage: 250 MG, UNK
     Dates: start: 20080825
  2. YAZ [Suspect]
     Indication: CONTRACEPTION
     Dosage: UNK
     Route: 048
     Dates: start: 20080601, end: 20081001
  3. YASMIN [Suspect]
     Indication: PRODUCT USED FOR UNKNOWN INDICATION
     Dosage: UNK
     Route: 048
     Dates: start: 20070301, end: 20080601

REACTIONS (3)
  - GALLBLADDER INJURY [None]
  - CHOLECYSTITIS CHRONIC [None]
  - CHOLELITHIASIS [None]
